FAERS Safety Report 5948407-5 (Version None)
Quarter: 2008Q4

REPORT INFORMATION
  Report Type: 
  Country: None (occurrence: None)
  Receive Date: 20081111
  Receipt Date: 20081031
  Transmission Date: 20090506
  Serious: Yes (Other)
  Sender: FDA-Public Use
  Company Number: CA-JNJFOC-20080901254

PATIENT
  Age: 22 Year
  Sex: Female

DRUGS (1)
  1. REMICADE [Suspect]
     Indication: CROHN'S DISEASE
     Route: 042

REACTIONS (6)
  - ABASIA [None]
  - ARTHRALGIA [None]
  - DYSSTASIA [None]
  - JOINT CREPITATION [None]
  - JOINT STIFFNESS [None]
  - SYSTEMIC LUPUS ERYTHEMATOSUS [None]
